FAERS Safety Report 5616730-X (Version None)
Quarter: 2008Q1

REPORT INFORMATION
  Report Type: 
  Country: None (occurrence: None)
  Receive Date: 20080204
  Receipt Date: 20080118
  Transmission Date: 20080703
  Serious: Yes (Death)
  Sender: FDA-Public Use
  Company Number: 2008000142

PATIENT
  Age: 67 Year
  Sex: Male
  Weight: 69 kg

DRUGS (4)
  1. MACUGEN [Suspect]
     Indication: DIABETIC RETINAL OEDEMA
     Dosage: 0.3 MG, Q6W), INTRA-VITREAL
     Route: 011
     Dates: start: 20070831, end: 20071129
  2. DIAMICRON MR (GLICLAZIDE) (TABLET) [Concomitant]
  3. AMLODIPINE [Concomitant]
  4. HUMALOX MIXTARD (INJECTION) [Concomitant]

REACTIONS (1)
  - DEATH [None]
